FAERS Safety Report 14805207 (Version 1)
Quarter: 2018Q2

REPORT INFORMATION
  Report Type: Spontaneous
  Country: FR (occurrence: FR)
  Receive Date: 20180425
  Receipt Date: 20180425
  Transmission Date: 20180711
  Serious: Yes (Other)
  Sender: FDA-Public Use
  Company Number: FR-MERCK KGAA-2046462

PATIENT
  Age: 42 Year
  Sex: Female

DRUGS (1)
  1. NOVOTHYROX [Suspect]
     Active Substance: LEVOTHYROXINE SODIUM
     Indication: PRODUCT USED FOR UNKNOWN INDICATION
     Dates: start: 201703

REACTIONS (37)
  - Pain in extremity [Not Recovered/Not Resolved]
  - Myalgia [Not Recovered/Not Resolved]
  - Paraesthesia [None]
  - Gait disturbance [Not Recovered/Not Resolved]
  - Vision blurred [None]
  - Mood altered [None]
  - Malaise [None]
  - Nausea [None]
  - Chest pain [None]
  - Feeling abnormal [None]
  - Hypoaesthesia [None]
  - Suffocation feeling [None]
  - Pain [Not Recovered/Not Resolved]
  - Arthralgia [Not Recovered/Not Resolved]
  - Limb discomfort [None]
  - Disturbance in attention [None]
  - Dyspnoea [None]
  - Chills [None]
  - Personal relationship issue [None]
  - Hyperhidrosis [None]
  - Dysstasia [Not Recovered/Not Resolved]
  - Weight increased [None]
  - Dizziness [Not Recovered/Not Resolved]
  - Asthenia [None]
  - Abdominal pain [None]
  - Loss of personal independence in daily activities [None]
  - Social avoidant behaviour [None]
  - Chest discomfort [None]
  - General physical health deterioration [None]
  - Alopecia [None]
  - Pruritus [None]
  - Anger [None]
  - Negative thoughts [None]
  - Fatigue [Not Recovered/Not Resolved]
  - Tachycardia [None]
  - Tremor [None]
  - Headache [None]
